FAERS Safety Report 14705594 (Version 3)
Quarter: 2018Q3

REPORT INFORMATION
  Report Type: Report from Study
  Country: US (occurrence: US)
  Receive Date: 20180402
  Receipt Date: 20180919
  Transmission Date: 20181010
  Serious: Yes (Hospitalization)
  Sender: FDA-Public Use
  Company Number: US-JNJFOC-20180338536

PATIENT
  Sex: Female

DRUGS (2)
  1. STELARA [Suspect]
     Active Substance: USTEKINUMAB
     Indication: CROHN^S DISEASE
     Route: 058
  2. STELARA [Suspect]
     Active Substance: USTEKINUMAB
     Indication: CROHN^S DISEASE
     Route: 058
     Dates: start: 20170926

REACTIONS (8)
  - Urinary tract infection [Unknown]
  - Sinusitis [Unknown]
  - Peripheral swelling [Unknown]
  - Bladder disorder [Unknown]
  - Joint swelling [Unknown]
  - Oral candidiasis [Unknown]
  - Inappropriate schedule of drug administration [Unknown]
  - Lethargy [Unknown]

NARRATIVE: CASE EVENT DATE: 20170926
